FAERS Safety Report 15601268 (Version 1)
Quarter: 2018Q4

REPORT INFORMATION
  Report Type: Spontaneous
  Country: US (occurrence: US)
  Receive Date: 20181109
  Receipt Date: 20181109
  Transmission Date: 20190205
  Serious: Yes (Hospitalization, Other)
  Sender: FDA-Public Use
  Company Number: US-ELI_LILLY_AND_COMPANY-US201811001550

PATIENT
  Age: 58 Year
  Sex: Male

DRUGS (2)
  1. CYRAMZA [Suspect]
     Active Substance: RAMUCIRUMAB
     Indication: NON-SMALL CELL LUNG CANCER
     Dosage: 10 MG/M2, UNKNOWN
     Route: 065
     Dates: start: 20171031, end: 20180416
  2. TAXOTERE [Suspect]
     Active Substance: DOCETAXEL
     Indication: NON-SMALL CELL LUNG CANCER
     Dosage: UNK, UNKNOWN
     Route: 065
     Dates: start: 20171031, end: 20180416

REACTIONS (5)
  - Anaemia [Unknown]
  - Fatigue [Unknown]
  - Haemoptysis [Unknown]
  - Malignant neoplasm progression [Unknown]
  - Cytopenia [Unknown]

NARRATIVE: CASE EVENT DATE: 20180206
